FAERS Safety Report 5509955-5 (Version None)
Quarter: 2007Q4

REPORT INFORMATION
  Report Type: 
  Country: None (occurrence: None)
  Receive Date: 20071107
  Receipt Date: 20071107
  Transmission Date: 20080405
  Serious: Yes (Death)
  Sender: FDA-Public Use
  Company Number: None

PATIENT
  Age: 48 Year
  Sex: Male
  Weight: 102.6 kg

DRUGS (5)
  1. FAZACLO AZUR PHARMA [Suspect]
     Indication: BIPOLAR DISORDER
     Dosage: 200MG EVERY MORNING PO
     Route: 048
  2. FAZACLO AZUR PHARMA [Suspect]
     Dosage: 100MG EVERY EVENING PO
     Route: 048
  3. LANTUS [Concomitant]
  4. ASPIRIN [Concomitant]
  5. LISINOPRIL [Concomitant]

REACTIONS (13)
  - ABDOMINAL PAIN [None]
  - FAECALOMA [None]
  - HAEMODIALYSIS [None]
  - HEART RATE INCREASED [None]
  - HYPOTENSION [None]
  - INTESTINAL DILATATION [None]
  - INTESTINAL ISCHAEMIA [None]
  - LACTIC ACIDOSIS [None]
  - MULTI-ORGAN FAILURE [None]
  - RESPIRATORY ACIDOSIS [None]
  - RESPIRATORY DISTRESS [None]
  - SEPSIS [None]
  - VOMITING [None]
